FAERS Safety Report 5268963-2 (Version None)
Quarter: 2007Q1

REPORT INFORMATION
  Report Type: 
  Country: None (occurrence: None)
  Receive Date: 20070319
  Receipt Date: 20070309
  Transmission Date: 20070707
  Serious: Yes (Other)
  Sender: FDA-Public Use
  Company Number: BR-JNJFOC-20070201218

PATIENT
  Age: 2 Year
  Sex: Female

DRUGS (2)
  1. HALDOL [Suspect]
     Indication: ACCIDENTAL EXPOSURE
     Route: 048
  2. BIPERIDEN HYDROCHLORIDE TAB [Suspect]
     Indication: ACCIDENTAL EXPOSURE
     Route: 048

REACTIONS (2)
  - ACCIDENTAL DRUG INTAKE BY CHILD [None]
  - DYSKINESIA [None]
